FAERS Safety Report 13903065 (Version 2)
Quarter: 2017Q3

REPORT INFORMATION
  Report Type: Spontaneous
  Country: US (occurrence: US)
  Receive Date: 20170824
  Receipt Date: 20170920
  Transmission Date: 20171127
  Serious: Yes (Hospitalization, Other)
  Sender: FDA-Public Use
  Company Number: US-009507513-1708USA009107

PATIENT

DRUGS (1)
  1. SIVEXTRO [Suspect]
     Active Substance: TEDIZOLID PHOSPHATE
     Indication: CELLULITIS STAPHYLOCOCCAL
     Dosage: 1 DF, 1 TABLET FOR 6 DAYS
     Route: 048

REACTIONS (1)
  - Cellulitis [Recovered/Resolved]
